FAERS Safety Report 4541777-4 (Version None)
Quarter: 2004Q4

REPORT INFORMATION
  Report Type: 
  Country: None (occurrence: None)
  Receive Date: 20041227
  Receipt Date: 20041214
  Transmission Date: 20050328
  Serious: Yes (Life-Threatening, Hospitalization)
  Sender: FDA-Public Use
  Company Number: 2004113279

PATIENT
  Age: 14 Year
  Sex: Female
  Weight: 62.4 kg

DRUGS (5)
  1. VORICONAZOLE (VORICONAZOLE) [Suspect]
     Indication: ANTIFUNGAL PROPHYLAXIS
     Dosage: 400 MG (200 MG, 2 IN 1 D), ORAL
     Route: 048
     Dates: start: 20040913, end: 20041119
  2. CYCLOSPORINE [Concomitant]
  3. PREDNISOLONE [Concomitant]
  4. RANITIDINE [Concomitant]
  5. MORPHINE SULFATE [Concomitant]

REACTIONS (1)
  - PANCREATITIS ACUTE [None]
